FAERS Safety Report 7548082-2 (Version None)
Quarter: 2011Q2

REPORT INFORMATION
  Report Type: 
  Country: None (occurrence: None)
  Receive Date: 20110615
  Receipt Date: 20081122
  Transmission Date: 20111010
  Serious: Yes (Other)
  Sender: FDA-Public Use
  Company Number: US-BAYER-200839401NA

PATIENT
  Age: 59 Year
  Sex: Male
  Weight: 109 kg

DRUGS (27)
  1. WARFARIN SODIUM [Concomitant]
     Dosage: 3MG/ 5 TIMES A WEEK
     Route: 048
  2. WARFARIN SODIUM [Concomitant]
     Dosage: 2MG. TWICE A WEEK
  3. ATACAND [Concomitant]
     Dosage: 4 MG, QD
     Route: 048
  4. TOPROL-XL [Concomitant]
     Dosage: 25 MG, QD
     Route: 048
  5. VERAPAMIL [Concomitant]
     Dosage: 120 MG, QD
     Route: 048
  6. AMIODARONE HCL [Concomitant]
     Dosage: DRIP
     Route: 042
  7. TRASYLOL [Suspect]
     Indication: AORTIC VALVE REPLACEMENT
     Dosage: 200 ML CARDIOPULMONARY BYPASS PRIME DOSE
     Dates: start: 20070531, end: 20070531
  8. ZOCOR [Concomitant]
     Dosage: 80 MG, QD
     Route: 048
  9. PRIMACOR [Concomitant]
     Dosage: UNK
     Route: 042
     Dates: start: 20070215, end: 20070219
  10. AMARYL [Concomitant]
     Route: 048
  11. MANNITOL [Concomitant]
     Dosage: VARIOUS DOSES
     Route: 042
  12. RED BLOOD CELLS [Concomitant]
     Dosage: UNK
     Dates: start: 20070531
  13. LASIX [Concomitant]
     Dosage: 80 MG, QD
     Route: 048
  14. ALTACE [Concomitant]
     Dosage: 5 MG, QD
     Route: 048
  15. VANCOMYCIN [Concomitant]
     Dosage: 1.5GM
     Route: 042
  16. PROTAMINE SULFATE [Concomitant]
     Dosage: 250MG
  17. ALBUMIN (HUMAN) [Concomitant]
     Dosage: 500ML
     Route: 042
  18. TRASYLOL [Suspect]
     Indication: MITRAL VALVE REPAIR
  19. TRASYLOL [Suspect]
     Indication: TRICUSPID VALVE REPAIR
  20. COREG [Concomitant]
     Dosage: 20 MG, QD
     Route: 048
  21. NATRECOR [Concomitant]
     Dosage: UNK
     Route: 042
     Dates: start: 20070212, end: 20070216
  22. INSULIN [Concomitant]
     Dosage: VARIOUS DOSES
     Route: 042
     Dates: start: 20070531, end: 20070531
  23. BUMEX [Concomitant]
     Dosage: 3 MG, PRN
     Route: 048
  24. ZAROXOLYN [Concomitant]
     Dosage: 10 MG, QD
     Route: 048
  25. TIKOSYN [Concomitant]
     Dosage: 0.5 MG, BID
     Route: 048
  26. VASOPRESSIN [Concomitant]
     Dosage: VARIOUS DOSES
     Route: 042
  27. FENTANYL [Concomitant]
     Dosage: DRIP - VARIOUS DOSES
     Route: 042
     Dates: start: 20070531, end: 20070531

REACTIONS (13)
  - MULTI-ORGAN FAILURE [None]
  - RENAL IMPAIRMENT [None]
  - RENAL FAILURE [None]
  - EMOTIONAL DISTRESS [None]
  - INJURY [None]
  - DIABETES MELLITUS INADEQUATE CONTROL [None]
  - ANHEDONIA [None]
  - STRESS [None]
  - UNEVALUABLE EVENT [None]
  - PAIN [None]
  - RENAL INJURY [None]
  - FEAR [None]
  - ANXIETY [None]
